FAERS Safety Report 15482250 (Version 1)
Quarter: 2018Q4

REPORT INFORMATION
  Report Type: Report from Study
  Country: None (occurrence: RO)
  Receive Date: 20181010
  Receipt Date: 20181010
  Transmission Date: 20190205
  Serious: Yes (Death, Other)
  Sender: FDA-Public Use
  Company Number: RO-KADMON PHARMACEUTICALS, LLC-KAD-201810-01389

PATIENT
  Age: 79 Year
  Sex: Female

DRUGS (8)
  1. NORMIX [Concomitant]
     Active Substance: RIFAXIMIN
  2. DIUREX [Concomitant]
     Active Substance: AMILORIDE HYDROCHLORIDE\HYDROCHLOROTHIAZIDE
  3. LEDIPASVIR/SOFOSBUVIR [Suspect]
     Active Substance: LEDIPASVIR\SOFOSBUVIR
     Indication: HEPATITIS C
  4. RIBAVIRIN. [Suspect]
     Active Substance: RIBAVIRIN
     Indication: HEPATIC CIRRHOSIS
     Route: 048
     Dates: start: 20180330, end: 201804
  5. RIBAVIRIN. [Suspect]
     Active Substance: RIBAVIRIN
     Indication: HEPATITIS C
  6. DAIPIRIL [Concomitant]
  7. LEDIPASVIR/SOFOSBUVIR [Suspect]
     Active Substance: LEDIPASVIR\SOFOSBUVIR
     Indication: HEPATIC CIRRHOSIS
     Dosage: 1 DOSAGE FORMS
     Route: 048
     Dates: start: 20180330, end: 20180621
  8. PROPRANOLOL [Concomitant]
     Active Substance: PROPRANOLOL HYDROCHLORIDE

REACTIONS (2)
  - Haemoglobin decreased [Fatal]
  - Death [Fatal]

NARRATIVE: CASE EVENT DATE: 20180412
